FAERS Safety Report 7589737-3 (Version None)
Quarter: 2011Q3

REPORT INFORMATION
  Report Type: 
  Country: None (occurrence: None)
  Receive Date: 20110705
  Receipt Date: 20110701
  Transmission Date: 20111222
  Serious: Yes (Life-Threatening)
  Sender: FDA-Public Use
  Company Number: FI-B.I. PHARMACEUTICALS,INC./RIDGEFIELD-2011-SW-00277SF

PATIENT
  Age: 68 Year
  Sex: Male

DRUGS (3)
  1. PRADAXA [Suspect]
     Indication: ATRIAL FIBRILLATION
  2. PREDNISOLONE [Concomitant]
  3. SIMVASTATIN [Concomitant]

REACTIONS (2)
  - HAEMORRHAGE [None]
  - PROCEDURAL COMPLICATION [None]
